FAERS Safety Report 21352849 (Version 2)
Quarter: 2023Q1

REPORT INFORMATION
  Report Type: Spontaneous
  Country: GB (occurrence: GB)
  Receive Date: 20220920
  Receipt Date: 20230116
  Transmission Date: 20230418
  Serious: Yes (Life-Threatening, Other)
  Sender: FDA-Public Use
  Company Number: GB-SA-SAC20220830000773

PATIENT
  Age: 63 Year
  Sex: Male

DRUGS (8)
  1. CARBOPLATIN [Suspect]
     Active Substance: CARBOPLATIN
     Indication: Angioimmunoblastic T-cell lymphoma stage III
     Dosage: UNKNOWN
     Route: 065
  2. ETOPOSIDE [Suspect]
     Active Substance: ETOPOSIDE
     Indication: Angioimmunoblastic T-cell lymphoma stage III
     Dosage: UNKNOWN
     Route: 065
  3. COPIKTRA [Suspect]
     Active Substance: DUVELISIB
     Indication: Angioimmunoblastic T-cell lymphoma stage III
     Dosage: UNKNOWN
     Route: 065
  4. CYCLOPHOSPHAMIDE [Suspect]
     Active Substance: CYCLOPHOSPHAMIDE
     Indication: Angioimmunoblastic T-cell lymphoma stage III
     Dosage: UNKNOWN
     Route: 065
  5. DOXORUBICIN [Suspect]
     Active Substance: DOXORUBICIN
     Indication: Angioimmunoblastic T-cell lymphoma stage III
     Dosage: UNKNOWN
     Route: 065
  6. IFOSFAMIDE [Suspect]
     Active Substance: IFOSFAMIDE
     Indication: Angioimmunoblastic T-cell lymphoma stage III
     Dosage: UNKNOWN
     Route: 065
  7. PREDNISONE [Suspect]
     Active Substance: PREDNISONE
     Indication: Angioimmunoblastic T-cell lymphoma stage III
     Dosage: UNKNOWN
     Route: 065
  8. VINCRISTINE [Suspect]
     Active Substance: VINCRISTINE
     Indication: Angioimmunoblastic T-cell lymphoma stage III
     Dosage: UNKNOWN
     Route: 065

REACTIONS (1)
  - T-cell lymphoma refractory [Unknown]
